FAERS Safety Report 11513330 (Version 1)
Quarter: 2015Q3

REPORT INFORMATION
  Report Type: Spontaneous
  Country: DE (occurrence: DE)
  Receive Date: 20150916
  Receipt Date: 20150916
  Transmission Date: 20151125
  Serious: Yes (Disabling, Other)
  Sender: FDA-Public Use
  Company Number: PHHY2015DE090567

PATIENT
  Sex: Female
  Weight: 55 kg

DRUGS (1)
  1. FEMARA [Suspect]
     Active Substance: LETROZOLE
     Indication: BREAST CANCER
     Dosage: 2.5 MG, QD
     Route: 048
     Dates: start: 20150518

REACTIONS (3)
  - Myalgia [Not Recovered/Not Resolved]
  - Bone pain [Not Recovered/Not Resolved]
  - Progressive external ophthalmoplegia [Unknown]

NARRATIVE: CASE EVENT DATE: 201506
